FAERS Safety Report 7889997-5 (Version None)
Quarter: 2011Q4

REPORT INFORMATION
  Report Type: 
  Country: None (occurrence: None)
  Receive Date: 20111103
  Receipt Date: 20111026
  Transmission Date: 20120403
  Serious: Yes (Hospitalization, Other)
  Sender: FDA-Public Use
  Company Number: PHHY2011BR86042

PATIENT
  Sex: Female

DRUGS (4)
  1. RASILEZ [Suspect]
     Dosage: 300 MG, UNK
  2. DIOVAN [Suspect]
     Dosage: 160 MG, UNK
  3. DIOVAN [Suspect]
     Dosage: 80 MG, UNK
  4. DIOVAN [Suspect]
     Dosage: 320 MG, UNK

REACTIONS (3)
  - ISCHAEMIA [None]
  - LOSS OF CONSCIOUSNESS [None]
  - BLOOD PRESSURE INCREASED [None]
